FAERS Safety Report 5135526-9 (Version None)
Quarter: 2006Q4

REPORT INFORMATION
  Report Type: 
  Country: None (occurrence: None)
  Receive Date: 20061026
  Receipt Date: 20060306
  Transmission Date: 20070319
  Serious: Yes (Death)
  Sender: FDA-Public Use
  Company Number: US-ELI_LILLY_AND_COMPANY-US200605005795

PATIENT
  Age: 47 Year
  Sex: Male
  Weight: 190.48 kg

DRUGS (1)
  1. ZYPREXA [Suspect]
     Indication: BIPOLAR DISORDER
     Dosage: 20 MG, UNK
     Dates: start: 19970101, end: 20000101

REACTIONS (2)
  - DEATH [None]
  - DIABETES MELLITUS [None]
